FAERS Safety Report 9681020 (Version 1)
Quarter: 2013Q4

REPORT INFORMATION
  Report Type: Spontaneous
  Country: DE (occurrence: DE)
  Receive Date: 20131111
  Receipt Date: 20131111
  Transmission Date: 20140711
  Serious: Yes (Other)
  Sender: FDA-Public Use
  Company Number: DE-ASTRAZENECA-2013SE81838

PATIENT
  Age: 73 Year
  Sex: Female

DRUGS (15)
  1. SEROQUEL PROLONG [Suspect]
     Route: 048
     Dates: start: 20130522, end: 20130530
  2. SEROQUEL PROLONG [Suspect]
     Route: 048
     Dates: start: 20130531, end: 20130616
  3. SEROQUEL PROLONG [Suspect]
     Route: 048
     Dates: start: 20130617
  4. RISPERDAL [Suspect]
     Route: 048
     Dates: start: 20130411, end: 20130417
  5. RISPERDAL [Suspect]
     Route: 048
     Dates: start: 20130418, end: 20130609
  6. RISPERDAL [Suspect]
     Route: 048
     Dates: start: 20130610, end: 20130617
  7. RISPERDAL [Suspect]
     Route: 048
     Dates: start: 20130618
  8. MELPERON [Suspect]
     Route: 048
     Dates: start: 20130612, end: 20130626
  9. EUTHYROX [Concomitant]
     Route: 048
  10. VIGANTOLETTEN [Concomitant]
     Route: 048
  11. ASA [Concomitant]
     Route: 048
  12. VITAMIN B12 [Concomitant]
     Route: 048
     Dates: start: 20130418
  13. SIMVASTATIN [Concomitant]
     Route: 048
     Dates: start: 20130419
  14. VITAMIN D [Concomitant]
  15. VIGANTOL [Concomitant]
     Route: 048

REACTIONS (1)
  - Urinary retention [Recovered/Resolved]
